FAERS Safety Report 17004625 (Version 2)
Quarter: 2020Q1

REPORT INFORMATION
  Report Type: Spontaneous
  Country: US (occurrence: US)
  Receive Date: 20191107
  Receipt Date: 20200103
  Transmission Date: 20200409
  Serious: No
  Sender: FDA-Public Use
  Company Number: US-PFIZER INC-2019480587

PATIENT
  Age: 77 Year
  Sex: Male
  Weight: 113.38 kg

DRUGS (1)
  1. PREGABALIN. [Suspect]
     Active Substance: PREGABALIN
     Dosage: 150 MG, 2X/DAY (150MG TWICE A DAY)
     Dates: start: 201908, end: 201911

REACTIONS (5)
  - Drug ineffective [Not Recovered/Not Resolved]
  - Muscle spasms [Unknown]
  - Dyskinesia [Not Recovered/Not Resolved]
  - Hypoaesthesia [Not Recovered/Not Resolved]
  - Paraesthesia [Not Recovered/Not Resolved]

NARRATIVE: CASE EVENT DATE: 2019
